FAERS Safety Report 13938958 (Version 2)
Quarter: 2017Q3

REPORT INFORMATION
  Report Type: Spontaneous
  Country: ZA (occurrence: ZA)
  Receive Date: 20170906
  Receipt Date: 20170907
  Transmission Date: 20171127
  Serious: Yes (Other)
  Sender: FDA-Public Use
  Company Number: ZA-CIPLA LTD.-2017ZA16065

PATIENT

DRUGS (1)
  1. TENOFOVIR/EMTRICITABINE/EFAVIRENZ [Suspect]
     Active Substance: EFAVIRENZ\EMTRICITABINE\TENOFOVIR DISOPROXIL FUMARATE
     Indication: ANTIRETROVIRAL THERAPY
     Dosage: 300/200/600 MG
     Route: 065

REACTIONS (3)
  - Drug level increased [Unknown]
  - Ataxia [Recovered/Resolved]
  - Cerebellar syndrome [Unknown]
